FAERS Safety Report 8600408-4 (Version None)
Quarter: 2012Q3

REPORT INFORMATION
  Report Type: 
  Country: None (occurrence: None)
  Receive Date: 20120817
  Receipt Date: 20120813
  Transmission Date: 20120928
  Serious: No
  Sender: FDA-Public Use
  Company Number: US-PFIZER INC-2012198496

PATIENT
  Age: 61 Year
  Sex: Female
  Weight: 77 kg

DRUGS (2)
  1. FLECTOR [Suspect]
     Indication: FRACTURED COCCYX
     Dosage: UNK, 2X/DAY
     Dates: start: 20120808, end: 20120813
  2. CYMBALTA [Concomitant]
     Indication: STRESS
     Dosage: 10 MG, DAILY

REACTIONS (1)
  - BURNING SENSATION [None]
